FAERS Safety Report 6843035-1 (Version None)
Quarter: 2010Q3

REPORT INFORMATION
  Report Type: 
  Country: None (occurrence: None)
  Receive Date: 20100709
  Receipt Date: 20100624
  Transmission Date: 20110219
  Serious: Yes (Hospitalization)
  Sender: FDA-Public Use
  Company Number: 2010BI022841

PATIENT
  Age: 67 Year
  Sex: Female

DRUGS (8)
  1. ZEVALIN [Suspect]
     Indication: MANTLE CELL LYMPHOMA
     Dosage: IV
     Route: 042
     Dates: start: 20090201, end: 20090201
  2. RITUXIMAB [Concomitant]
  3. CYCLOPHOSPHAMIDE [Concomitant]
  4. VINCRISTINE [Concomitant]
  5. ADRIAMYCIN PFS [Concomitant]
  6. DEXAMETHASONS [Concomitant]
  7. METHOTREXATE [Concomitant]
  8. CYTARABINE [Concomitant]

REACTIONS (1)
  - UTERINE CANCER [None]
